FAERS Safety Report 6464243-8 (Version None)
Quarter: 2009Q4

REPORT INFORMATION
  Report Type: 
  Country: None (occurrence: None)
  Receive Date: 20091201
  Receipt Date: 20091126
  Transmission Date: 20100525
  Serious: Yes (Death)
  Sender: FDA-Public Use
  Company Number: PHHY2009IN51956

PATIENT
  Age: 21 Year
  Sex: Male

DRUGS (1)
  1. ASUNRA [Suspect]

REACTIONS (2)
  - DISEASE PROGRESSION [None]
  - PYREXIA [None]
